FAERS Safety Report 6785685 (Version 17)
Quarter: 2018Q1

REPORT INFORMATION
  Report Type: Spontaneous
  Country: US (occurrence: US)
  Receive Date: 20081013
  Receipt Date: 20180130
  Transmission Date: 20180509
  Serious: Yes (Hospitalization, Disabling, Other)
  Sender: FDA-Public Use
  Company Number: PHEH2008US08911

PATIENT
  Age: 55 Year
  Sex: Female
  Weight: 80.5 kg

DRUGS (39)
  1. ZESTRIL [Concomitant]
     Active Substance: LISINOPRIL
     Indication: PRODUCT USED FOR UNKNOWN INDICATION
     Dosage: 10 MG, UNK
     Route: 065
  2. RADIATION THERAPY [Concomitant]
     Active Substance: RADIATION THERAPY
     Indication: PRODUCT USED FOR UNKNOWN INDICATION
     Route: 065
  3. HERCEPTIN [Concomitant]
     Active Substance: TRASTUZUMAB
     Indication: PRODUCT USED FOR UNKNOWN INDICATION
     Route: 065
  4. NORCO [Concomitant]
     Active Substance: ACETAMINOPHEN\HYDROCODONE BITARTRATE
     Indication: PRODUCT USED FOR UNKNOWN INDICATION
     Route: 065
  5. CEFAZOLIN [Concomitant]
     Active Substance: CEFAZOLIN
     Indication: PRODUCT USED FOR UNKNOWN INDICATION
     Route: 065
  6. FENTANYL. [Concomitant]
     Active Substance: FENTANYL
     Indication: PRODUCT USED FOR UNKNOWN INDICATION
     Route: 065
  7. LISINOPRIL. [Concomitant]
     Active Substance: LISINOPRIL
     Indication: PRODUCT USED FOR UNKNOWN INDICATION
     Route: 065
  8. CEPHALEXIN. [Concomitant]
     Active Substance: CEPHALEXIN
     Indication: PRODUCT USED FOR UNKNOWN INDICATION
     Route: 065
  9. CELEBREX [Concomitant]
     Active Substance: CELECOXIB
     Indication: PRODUCT USED FOR UNKNOWN INDICATION
     Route: 065
  10. LOTREL [Concomitant]
     Active Substance: AMLODIPINE BESYLATE\BENAZEPRIL HYDROCHLORIDE
     Indication: PRODUCT USED FOR UNKNOWN INDICATION
     Route: 065
  11. ELAVIL [Concomitant]
     Active Substance: AMITRIPTYLINE HYDROCHLORIDE
     Indication: PRODUCT USED FOR UNKNOWN INDICATION
     Dosage: 100 MG, UNK
     Route: 065
  12. TAXOL [Concomitant]
     Active Substance: PACLITAXEL
     Indication: PRODUCT USED FOR UNKNOWN INDICATION
     Route: 065
  13. PEPCID [Concomitant]
     Active Substance: FAMOTIDINE
     Indication: PRODUCT USED FOR UNKNOWN INDICATION
     Dosage: 20 MG, UNK
     Route: 065
  14. ARIMIDEX [Concomitant]
     Active Substance: ANASTROZOLE
     Indication: PRODUCT USED FOR UNKNOWN INDICATION
     Dosage: 1 MG, UNK
     Route: 065
  15. ZOSYN [Concomitant]
     Active Substance: PIPERACILLIN SODIUM\TAZOBACTAM SODIUM
     Indication: PRODUCT USED FOR UNKNOWN INDICATION
     Route: 065
  16. DEMEROL [Concomitant]
     Active Substance: MEPERIDINE HYDROCHLORIDE
     Indication: PRODUCT USED FOR UNKNOWN INDICATION
     Route: 065
  17. RESTORIL [Concomitant]
     Active Substance: TEMAZEPAM
     Indication: PRODUCT USED FOR UNKNOWN INDICATION
     Route: 065
  18. HYDROMORPHONE [Concomitant]
     Active Substance: HYDROMORPHONE
     Indication: PRODUCT USED FOR UNKNOWN INDICATION
     Dosage: 2 MG/ML, UNK
     Route: 065
  19. LOTENSIN [Concomitant]
     Active Substance: BENAZEPRIL HYDROCHLORIDE
     Indication: PRODUCT USED FOR UNKNOWN INDICATION
     Dosage: 40 MG, UNK
     Route: 065
  20. MILK OF MAGNESIA [Concomitant]
     Active Substance: MAGNESIUM HYDROXIDE
     Indication: PRODUCT USED FOR UNKNOWN INDICATION
     Route: 065
  21. AREDIA [Suspect]
     Active Substance: PAMIDRONATE DISODIUM
     Dosage: UNK
     Route: 042
     Dates: end: 200907
  22. CIPROFLOXACIN. [Concomitant]
     Active Substance: CIPROFLOXACIN
     Indication: PRODUCT USED FOR UNKNOWN INDICATION
     Route: 065
  23. DILAUDID [Concomitant]
     Active Substance: HYDROMORPHONE HYDROCHLORIDE
     Indication: PAIN
     Route: 065
  24. AMITRIPTYLINE [Concomitant]
     Active Substance: AMITRIPTYLINE
     Indication: PRODUCT USED FOR UNKNOWN INDICATION
     Dosage: 50 MG, UNK
     Route: 065
  25. ROCURONIUM [Concomitant]
     Active Substance: ROCURONIUM BROMIDE
     Indication: PRODUCT USED FOR UNKNOWN INDICATION
     Route: 065
  26. MORPHINE SULFATE. [Concomitant]
     Active Substance: MORPHINE SULFATE
     Indication: PRODUCT USED FOR UNKNOWN INDICATION
     Route: 065
  27. AREDIA [Suspect]
     Active Substance: PAMIDRONATE DISODIUM
     Dosage: UNK
     Route: 042
     Dates: end: 201408
  28. ENOXAPARIN [Concomitant]
     Active Substance: ENOXAPARIN
     Indication: PRODUCT USED FOR UNKNOWN INDICATION
     Dosage: 40 MG, UNK
     Route: 065
  29. NORVASC [Concomitant]
     Active Substance: AMLODIPINE BESYLATE
     Indication: PRODUCT USED FOR UNKNOWN INDICATION
     Dosage: 5 MG, UNK
     Route: 065
  30. COLACE [Concomitant]
     Active Substance: DOCUSATE SODIUM
     Indication: PRODUCT USED FOR UNKNOWN INDICATION
     Route: 065
  31. AREDIA [Suspect]
     Active Substance: PAMIDRONATE DISODIUM
     Indication: METASTASES TO BONE
     Dosage: 90 MG, QMO
     Route: 042
     Dates: start: 199912, end: 200806
  32. HERCEPTIN [Concomitant]
     Active Substance: TRASTUZUMAB
     Indication: PRODUCT USED FOR UNKNOWN INDICATION
     Dosage: 440 MG, UNK
     Route: 065
  33. DEXAMETHASONE. [Concomitant]
     Active Substance: DEXAMETHASONE
     Indication: PRODUCT USED FOR UNKNOWN INDICATION
     Dosage: 4 MG, UNK
     Route: 048
  34. ALBUTEROL. [Concomitant]
     Active Substance: ALBUTEROL
     Indication: PRODUCT USED FOR UNKNOWN INDICATION
     Dosage: 2.5 MG, UNK
     Route: 065
  35. ARIMIDEX [Concomitant]
     Active Substance: ANASTROZOLE
     Indication: PRODUCT USED FOR UNKNOWN INDICATION
     Dosage: 1 MG, UNK
     Route: 065
  36. BACTROBAN [Concomitant]
     Active Substance: MUPIROCIN\MUPIROCIN CALCIUM
     Indication: PRODUCT USED FOR UNKNOWN INDICATION
     Route: 065
  37. NAVELBINE ^B.W. INC.^ [Concomitant]
     Indication: PRODUCT USED FOR UNKNOWN INDICATION
     Route: 065
  38. ZOMETA [Suspect]
     Active Substance: ZOLEDRONIC ACID
     Indication: PRODUCT USED FOR UNKNOWN INDICATION
     Route: 065
  39. PRINIVIL [Concomitant]
     Active Substance: LISINOPRIL
     Indication: PRODUCT USED FOR UNKNOWN INDICATION
     Route: 065

REACTIONS (116)
  - Mouth ulceration [Unknown]
  - Ankle fracture [Unknown]
  - Sepsis [Unknown]
  - Nephrolithiasis [Unknown]
  - Haemangioma [Unknown]
  - Metastases to lung [Unknown]
  - Metastases to mouth [Unknown]
  - Ecchymosis [Unknown]
  - Dry eye [Unknown]
  - Pleural fibrosis [Unknown]
  - Large intestine polyp [Unknown]
  - Oedema peripheral [Unknown]
  - Osteonecrosis of jaw [Not Recovered/Not Resolved]
  - Actinomycosis [Unknown]
  - Lymphadenopathy [Unknown]
  - Osteomyelitis [Recovering/Resolving]
  - Osteoporosis [Unknown]
  - Osteopenia [Unknown]
  - Lymphoedema [Unknown]
  - Mitral valve incompetence [Unknown]
  - Tricuspid valve incompetence [Unknown]
  - Chronic sinusitis [Unknown]
  - Pleural effusion [Unknown]
  - Iron deficiency [Unknown]
  - Muscular weakness [Unknown]
  - Hiatus hernia [Unknown]
  - Retching [Unknown]
  - Paraesthesia [Unknown]
  - Stomatitis [Unknown]
  - Cough [Unknown]
  - Nausea [Unknown]
  - Disability [Unknown]
  - Dental prosthesis user [Unknown]
  - Pain in jaw [Recovered/Resolved]
  - Oroantral fistula [Unknown]
  - Colitis [Unknown]
  - Deep vein thrombosis [Unknown]
  - Multiple fractures [Unknown]
  - Metastases to bone [Unknown]
  - Disorientation [Unknown]
  - Amnesia [Unknown]
  - Sciatica [Unknown]
  - Flank pain [Unknown]
  - Rash [Unknown]
  - Malaise [Unknown]
  - Musculoskeletal pain [Unknown]
  - Vomiting [Unknown]
  - Anxiety [Unknown]
  - Gingival ulceration [Unknown]
  - Gingivitis [Unknown]
  - Bronchitis [Unknown]
  - Chronic obstructive pulmonary disease [Unknown]
  - Femur fracture [Unknown]
  - Vitamin D deficiency [Unknown]
  - Peripheral swelling [Unknown]
  - Weight increased [Unknown]
  - Pruritus [Unknown]
  - Back pain [Unknown]
  - Headache [Unknown]
  - Injury [Unknown]
  - Cardiomegaly [Unknown]
  - Renal failure [Unknown]
  - Chest pain [Unknown]
  - Left ventricular hypertrophy [Unknown]
  - Nail disorder [Unknown]
  - Onychomadesis [Unknown]
  - Gait disturbance [Unknown]
  - Pyrexia [Unknown]
  - Arthralgia [Unknown]
  - Constipation [Unknown]
  - Impaired healing [Unknown]
  - Bone fragmentation [Unknown]
  - Dysphonia [Unknown]
  - Hip fracture [Recovering/Resolving]
  - Intervertebral disc protrusion [Unknown]
  - Immune system disorder [Unknown]
  - Asthma [Unknown]
  - Spondylolisthesis [Unknown]
  - Intervertebral disc degeneration [Unknown]
  - Spinal compression fracture [Unknown]
  - Osteolysis [Unknown]
  - Diverticulum [Unknown]
  - Obesity [Unknown]
  - Liver disorder [Unknown]
  - Mood swings [Unknown]
  - Wheezing [Unknown]
  - Fall [Unknown]
  - Rotator cuff syndrome [Unknown]
  - Upper respiratory tract infection [Unknown]
  - Productive cough [Unknown]
  - Insomnia [Unknown]
  - Anhedonia [Unknown]
  - Osteitis [Unknown]
  - Osteoarthritis [Unknown]
  - Vertebral foraminal stenosis [Unknown]
  - Colon adenoma [Unknown]
  - Renal cyst [Unknown]
  - Electrolyte imbalance [Unknown]
  - Anaemia [Unknown]
  - Neuropathy peripheral [Unknown]
  - Dry mouth [Unknown]
  - Hypoaesthesia [Unknown]
  - Arthritis [Unknown]
  - Dyspnoea [Unknown]
  - Dizziness [Unknown]
  - Diarrhoea [Unknown]
  - Pain [Unknown]
  - Mandibular prosthesis user [Unknown]
  - Radiculopathy [Recovered/Resolved]
  - Neuralgia [Unknown]
  - Rib fracture [Unknown]
  - Chronic kidney disease [Unknown]
  - Depression [Unknown]
  - Nasal congestion [Unknown]
  - Ligament sprain [Unknown]
  - Fatigue [Unknown]

NARRATIVE: CASE EVENT DATE: 2000
